FAERS Safety Report 8967865 (Version 2)
Quarter: 2013Q1

REPORT INFORMATION
  Report Type: Spontaneous
  Country: US (occurrence: US)
  Receive Date: 20121217
  Receipt Date: 20130108
  Transmission Date: 20140127
  Serious: No
  Sender: FDA-Public Use
  Company Number: US-ASTRAZENECA-2012SE91141

PATIENT
  Sex: Female

DRUGS (6)
  1. PULMICORT FLEXHALER [Suspect]
     Indication: DYSPNOEA
     Route: 055
     Dates: start: 201206, end: 201208
  2. PULMICORT FLEXHALER [Suspect]
     Indication: CHEST DISCOMFORT
     Route: 055
     Dates: start: 201206, end: 201208
  3. PULMICORT FLEXHALER [Suspect]
     Indication: DYSPNOEA
     Route: 055
     Dates: start: 201211
  4. PULMICORT FLEXHALER [Suspect]
     Indication: CHEST DISCOMFORT
     Route: 055
     Dates: start: 201211
  5. NEXIUM [Suspect]
     Indication: CHEST DISCOMFORT
     Dosage: DAILY
     Route: 048
     Dates: start: 201211
  6. COZAAR [Concomitant]
     Indication: HYPERTENSION

REACTIONS (4)
  - Nasopharyngitis [Not Recovered/Not Resolved]
  - Oropharyngeal pain [Recovered/Resolved]
  - Off label use [Unknown]
  - Off label use [Unknown]
